FAERS Safety Report 7635415-1 (Version None)
Quarter: 2011Q3

REPORT INFORMATION
  Report Type: 
  Country: None (occurrence: None)
  Receive Date: 20110726
  Receipt Date: 20110714
  Transmission Date: 20111222
  Serious: Yes (Hospitalization)
  Sender: FDA-Public Use
  Company Number: US-SANOFI-AVENTIS-2011SA045906

PATIENT
  Age: 55 Year
  Sex: Male

DRUGS (20)
  1. OMEPRAZOLE [Concomitant]
     Dates: start: 20110520
  2. EMEND [Concomitant]
     Dates: start: 20110505
  3. COMPAZINE [Concomitant]
     Dates: start: 20110423
  4. CALCIUM ACETATE [Concomitant]
     Dates: start: 20110519
  5. BEVACIZUMAB [Suspect]
     Dosage: FREQUENCY: EVERY 14 DAYS
     Route: 042
     Dates: start: 20110402, end: 20110602
  6. LOPERAMIDE HYDROCHLORIDE [Concomitant]
     Dates: start: 20110426
  7. MAGNESIUM SULFATE [Concomitant]
     Dates: start: 20110421
  8. OXALIPLATIN [Suspect]
     Dosage: FORM: INFUSION (46 HOUR)FREQUENCY: 1 PER 14 DAY
     Route: 042
     Dates: start: 20110402, end: 20110606
  9. LEUCOVORIN CALCIUM [Suspect]
     Route: 065
  10. DEXAMETHASONE [Concomitant]
     Dates: start: 20110505
  11. MARINOL [Concomitant]
  12. ADVIL [Concomitant]
     Dates: start: 20110301
  13. CALCIUM GLUCONATE [Concomitant]
     Dates: start: 20110421
  14. SENNA [Concomitant]
     Dates: start: 20110421
  15. FLUOROURACIL [Suspect]
     Dosage: FREQUENCY: EVERY 14 DAYS
     Route: 042
     Dates: start: 20110402, end: 20110604
  16. LOVENOX [Concomitant]
     Dates: start: 20110613
  17. FLUOROURACIL [Suspect]
     Dosage: FREQUENCY: EVERY 14 DAYS
     Route: 042
     Dates: start: 20110402, end: 20110604
  18. ONDANSETRON [Concomitant]
     Dates: start: 20110505
  19. PALONOSETRON [Concomitant]
     Dates: start: 20110421
  20. CALCIUM/COLECALCIFEROL [Concomitant]
     Dates: start: 20110512

REACTIONS (1)
  - ISCHAEMIC STROKE [None]
